FAERS Safety Report 16769369 (Version 4)
Quarter: 2019Q4

REPORT INFORMATION
  Report Type: Spontaneous
  Country: US (occurrence: US)
  Receive Date: 20190903
  Receipt Date: 20191211
  Transmission Date: 20200122
  Serious: No
  Sender: FDA-Public Use
  Company Number: US-ACTELION-A-US2019-193234

PATIENT
  Age: 72 Year
  Sex: Female
  Weight: 104.31 kg

DRUGS (3)
  1. TADALAFIL. [Concomitant]
     Active Substance: TADALAFIL
  2. AMLODIPINE [Concomitant]
     Active Substance: AMLODIPINE BESYLATE
  3. OPSUMIT [Suspect]
     Active Substance: MACITENTAN
     Indication: PULMONARY ARTERIAL HYPERTENSION
     Dosage: 10 MG, QD
     Route: 048

REACTIONS (13)
  - Cardiac flutter [Unknown]
  - Chest discomfort [Unknown]
  - Fluid retention [Unknown]
  - Dizziness [Recovered/Resolved]
  - Presyncope [Unknown]
  - Dizziness postural [Unknown]
  - Depression [Not Recovered/Not Resolved]
  - Abdominal distension [Recovering/Resolving]
  - Feeling abnormal [Unknown]
  - Fall [Unknown]
  - Limb injury [Unknown]
  - Blood pressure increased [Unknown]
  - Arthritis [Unknown]

NARRATIVE: CASE EVENT DATE: 20191008
